FAERS Safety Report 16907014 (Version 2)
Quarter: 2019Q4

REPORT INFORMATION
  Report Type: Spontaneous
  Country: CA (occurrence: CA)
  Receive Date: 20191011
  Receipt Date: 20191118
  Transmission Date: 20200122
  Serious: Yes (Death, Hospitalization, Other)
  Sender: FDA-Public Use
  Company Number: CA-AUROBINDO-AUR-APL-2019-065149

PATIENT
  Age: 66 Year
  Sex: Male

DRUGS (5)
  1. SANDOSTATIN [Suspect]
     Active Substance: OCTREOTIDE ACETATE
     Dosage: 20 MILLIGRAM, EVERY MONTH
     Route: 030
  2. SANDOSTATIN [Suspect]
     Active Substance: OCTREOTIDE ACETATE
     Indication: CARCINOID TUMOUR
     Dosage: 150 MICROGRAM, TWO TIMES A DAY
     Route: 058
  3. OCTREOTIDE. [Concomitant]
     Active Substance: OCTREOTIDE
     Indication: CARCINOID TUMOUR
     Dosage: UNK
     Route: 065
  4. AMLODIPINE [Suspect]
     Active Substance: AMLODIPINE BESYLATE
     Indication: HYPERTENSION
     Dosage: 5.0 MILLIGRAM, ONCE A DAY
     Route: 065
  5. SANDOSTATIN [Suspect]
     Active Substance: OCTREOTIDE ACETATE
     Dosage: 30 MILLIGRAM, EVERY MONTH
     Route: 030

REACTIONS (11)
  - Nasopharyngitis [Fatal]
  - Oropharyngeal pain [Fatal]
  - Death [Fatal]
  - Feeling abnormal [Fatal]
  - Respiratory tract congestion [Fatal]
  - Blood pressure increased [Fatal]
  - Pyrexia [Fatal]
  - Intestinal obstruction [Fatal]
  - Upper respiratory tract infection [Fatal]
  - Malaise [Fatal]
  - Inappropriate schedule of product administration [Fatal]
